FAERS Safety Report 9128777 (Version 4)
Quarter: 2013Q3

REPORT INFORMATION
  Report Type: Report from Study
  Country: US (occurrence: US)
  Receive Date: 20130228
  Receipt Date: 20130829
  Transmission Date: 20140515
  Serious: Yes (Death, Hospitalization)
  Sender: FDA-Public Use
  Company Number: US-UCBSA-078967

PATIENT
  Age: 64 Year
  Sex: Female
  Weight: 35.3 kg

DRUGS (7)
  1. CERTOLIZUMAB PEGOL [Suspect]
     Indication: RHEUMATOID ARTHRITIS
     Dosage: 200MG / PLACEBO
     Route: 058
     Dates: start: 20121219, end: 20130131
  2. CERTOLIZUMAB PEGOL [Suspect]
     Indication: RHEUMATOID ARTHRITIS
     Dosage: 400 MG / PLACEBO
     Route: 058
     Dates: start: 20121108, end: 20121203
  3. METHOTREXATE [Concomitant]
     Indication: RHEUMATOID ARTHRITIS
     Dates: start: 20121120
  4. METHOTREXATE [Concomitant]
     Indication: RHEUMATOID ARTHRITIS
  5. FOLIC ACID [Concomitant]
     Indication: PROPHYLAXIS
     Route: 048
     Dates: start: 20121120
  6. MELOXICAM [Concomitant]
     Indication: HYPERTENSION
     Route: 048
     Dates: start: 20121027
  7. CIPRO [Concomitant]
     Indication: URINARY TRACT INFECTION
     Route: 048
     Dates: start: 20130131

REACTIONS (3)
  - Tuberculosis gastrointestinal [Fatal]
  - Pulmonary tuberculosis [Fatal]
  - Acute respiratory distress syndrome [Fatal]
